FAERS Safety Report 25935125 (Version 1)
Quarter: 2025Q4

REPORT INFORMATION
  Report Type: Spontaneous
  Country: EU (occurrence: EU)
  Receive Date: 20251017
  Receipt Date: 20251017
  Transmission Date: 20260117
  Serious: Yes (Other)
  Sender: AMGEN
  Company Number: EU-AMGEN-ESPSP2025204724

PATIENT

DRUGS (4)
  1. ADALIMUMAB [Suspect]
     Active Substance: ADALIMUMAB
     Indication: Connective tissue disease-associated interstitial lung disease
     Dosage: UNK
     Route: 065
  2. ETANERCEPT [Suspect]
     Active Substance: ETANERCEPT
     Indication: Connective tissue disease-associated interstitial lung disease
     Dosage: UNK
     Route: 065
  3. BARICITINIB [Suspect]
     Active Substance: BARICITINIB
     Indication: Connective tissue disease-associated interstitial lung disease
     Dosage: UNK, QD (MILLIGRAM)
     Route: 065
  4. PREDNISONE [Concomitant]
     Active Substance: PREDNISONE
     Indication: Connective tissue disease-associated interstitial lung disease
     Dosage: UNK, QD (MILLIGRAM)

REACTIONS (20)
  - Connective tissue disease-associated interstitial lung disease [Unknown]
  - Colitis ulcerative [Unknown]
  - Hypersensitivity pneumonitis [Unknown]
  - Acute myocardial infarction [Unknown]
  - Scleromalacia [Unknown]
  - Brain neoplasm malignant [Unknown]
  - Pneumocystis jirovecii pneumonia [Unknown]
  - Pneumonia pneumococcal [Unknown]
  - Pneumonitis [Unknown]
  - Pulmonary fibrosis [Unknown]
  - Myocardial infarction [Unknown]
  - Drug intolerance [Unknown]
  - Gastrointestinal disorder [Unknown]
  - Lung disorder [Unknown]
  - Eye disorder [Unknown]
  - Off label use [Unknown]
  - Arthropathy [Unknown]
  - Oral candidiasis [Unknown]
  - Urinary tract infection [Unknown]
  - Herpes zoster [Unknown]
